FAERS Safety Report 15395054 (Version 1)
Quarter: 2018Q3

REPORT INFORMATION
  Report Type: Spontaneous
  Country: US (occurrence: US)
  Receive Date: 20180918
  Receipt Date: 20180918
  Transmission Date: 20181010
  Serious: No
  Sender: FDA-Public Use
  Company Number: US-DRREDDYS-USA/USA/18/0099454

PATIENT
  Sex: Female

DRUGS (2)
  1. GENOTROPIN [Concomitant]
     Active Substance: SOMATROPIN
     Indication: GROWTH HORMONE DEFICIENCY
     Dosage: 6 DAYS A WEEK
     Route: 058
     Dates: start: 201303
  2. AMOXICILLIN. [Suspect]
     Active Substance: AMOXICILLIN
     Indication: PRODUCT USED FOR UNKNOWN INDICATION
     Route: 065

REACTIONS (1)
  - Drug hypersensitivity [Unknown]
